FAERS Safety Report 21976667 (Version 1)
Quarter: 2023Q1

REPORT INFORMATION
  Report Type: Spontaneous
  Country: DE (occurrence: DE)
  Receive Date: 20230210
  Receipt Date: 20230210
  Transmission Date: 20230418
  Serious: No
  Sender: FDA-Public Use
  Company Number: DE-ALKEM LABORATORIES LIMITED-DE-ALKEM-2022-10892

PATIENT
  Age: 62 Year
  Sex: Male
  Weight: 105 kg

DRUGS (3)
  1. EZETIMIBE [Suspect]
     Active Substance: EZETIMIBE
     Indication: Product used for unknown indication
     Dosage: UNK (EZETIMIB AL 10 MG TABLETTEN)
     Route: 048
     Dates: start: 202203
  2. EZETIMIBE [Suspect]
     Active Substance: EZETIMIBE
     Dosage: UNK (EZETIMIB AL 10 MG TABLETTEN)
     Route: 048
     Dates: start: 202203
  3. COMIRNATY [Concomitant]
     Active Substance: TOZINAMERAN
     Indication: Product used for unknown indication
     Dosage: UNK
     Route: 065
     Dates: start: 20220303, end: 20220303

REACTIONS (1)
  - Abdominal pain [Not Recovered/Not Resolved]

NARRATIVE: CASE EVENT DATE: 20220501
